FAERS Safety Report 11924037 (Version 2)
Quarter: 2016Q2

REPORT INFORMATION
  Report Type: Report from Study
  Country: US (occurrence: US)
  Receive Date: 20160118
  Receipt Date: 20160412
  Transmission Date: 20160815
  Serious: Yes (Death, Hospitalization)
  Sender: FDA-Public Use
  Company Number: US-JNJFOC-20151220710

PATIENT
  Age: 64 Year
  Sex: Male
  Weight: 64 kg

DRUGS (19)
  1. CYCLOBENZAPRINE [Concomitant]
     Active Substance: CYCLOBENZAPRINE
  2. IBRUTINIB [Suspect]
     Active Substance: IBRUTINIB
     Indication: THERAPY NAIVE
     Dosage: 420 MG, QD (CYCLE 1)
     Route: 048
     Dates: start: 20151012, end: 20151101
  3. IBRUTINIB [Suspect]
     Active Substance: IBRUTINIB
     Indication: CHRONIC LYMPHOCYTIC LEUKAEMIA
     Dosage: 420 MG, QD (CYCLE 2)
     Route: 048
     Dates: start: 201511, end: 20151129
  4. IBRUTINIB [Suspect]
     Active Substance: IBRUTINIB
     Indication: CHRONIC LYMPHOCYTIC LEUKAEMIA
     Dosage: 420 MG, QD (CYCLE 1)
     Route: 048
     Dates: start: 20151012, end: 20151101
  5. MELOXICAM. [Concomitant]
     Active Substance: MELOXICAM
  6. ASPIRIN. [Concomitant]
     Active Substance: ASPIRIN
  7. IBRUTINIB [Suspect]
     Active Substance: IBRUTINIB
     Indication: THERAPY NAIVE
     Dosage: 420 MG, QD (CYCLE 2)
     Route: 048
     Dates: start: 20151109, end: 20151112
  8. IBRUTINIB [Suspect]
     Active Substance: IBRUTINIB
     Indication: THERAPY NAIVE
     Dosage: 420 MG, QD (CYCLE 2)
     Route: 048
     Dates: start: 201511, end: 20151129
  9. RISPERIDONE. [Concomitant]
     Active Substance: RISPERIDONE
  10. DIGOXIN. [Concomitant]
     Active Substance: DIGOXIN
  11. BUSPIRONE [Concomitant]
     Active Substance: BUSPIRONE HYDROCHLORIDE
  12. SIMVASTATIN. [Concomitant]
     Active Substance: SIMVASTATIN
  13. FLUOXETINE [Concomitant]
     Active Substance: FLUOXETINE HYDROCHLORIDE
  14. IBRUTINIB [Suspect]
     Active Substance: IBRUTINIB
     Indication: CHRONIC LYMPHOCYTIC LEUKAEMIA
     Dosage: 420 MG, QD (CYCLE 2)
     Route: 048
     Dates: start: 20151109, end: 20151112
  15. RITUXIMAB [Suspect]
     Active Substance: RITUXIMAB
     Indication: CHRONIC LYMPHOCYTIC LEUKAEMIA
     Dosage: 325 MG/M2 (CYCLE 2, DAY 2)
     Route: 042
     Dates: end: 20151110
  16. METOPROLOL. [Concomitant]
     Active Substance: METOPROLOL
     Route: 048
     Dates: start: 20151028
  17. ALLOPURINOL. [Concomitant]
     Active Substance: ALLOPURINOL
  18. RITUXIMAB [Suspect]
     Active Substance: RITUXIMAB
     Indication: CHRONIC LYMPHOCYTIC LEUKAEMIA
     Dosage: 5 MG/M2 OVER 4 HRS (CYCLE 2, DAY 1)
     Route: 042
     Dates: start: 20151109
  19. METOPROLOL. [Concomitant]
     Active Substance: METOPROLOL
     Route: 048
     Dates: end: 20151027

REACTIONS (2)
  - Tumour lysis syndrome [Not Recovered/Not Resolved]
  - Death [Fatal]

NARRATIVE: CASE EVENT DATE: 20151102
